APPROVED DRUG PRODUCT: DIUPRES-500
Active Ingredient: CHLOROTHIAZIDE; RESERPINE
Strength: 500MG;0.125MG
Dosage Form/Route: TABLET;ORAL
Application: N011635 | Product #006
Applicant: MERCK AND CO INC
Approved: Aug 26, 1987 | RLD: No | RS: No | Type: DISCN